FAERS Safety Report 7820765-6 (Version None)
Quarter: 2011Q4

REPORT INFORMATION
  Report Type: 
  Country: None (occurrence: None)
  Receive Date: 20111018
  Receipt Date: 20111004
  Transmission Date: 20120403
  Serious: Yes (Hospitalization, Other)
  Sender: FDA-Public Use
  Company Number: US-BAYER-201041817NA

PATIENT
  Age: 29 Year
  Sex: Female

DRUGS (6)
  1. ASCORBIC ACID [Concomitant]
  2. VITAMIN D [Concomitant]
  3. DROSPIRENONE AND ETHINYL ESTRADIOL [Suspect]
     Indication: CONTRACEPTION
     Dosage: UNK
     Dates: start: 20081201, end: 20100120
  4. DROSPIRENONE AND ETHINYL ESTRADIOL [Suspect]
     Indication: ACNE
  5. ORTHO TRI-CYCLEN [Concomitant]
  6. PRENATABS [Concomitant]

REACTIONS (3)
  - PULMONARY INFARCTION [None]
  - PULMONARY EMBOLISM [None]
  - GALLBLADDER DISORDER [None]
